FAERS Safety Report 20303704 (Version 2)
Quarter: 2022Q1

REPORT INFORMATION
  Report Type: Other
  Country: CA (occurrence: CA)
  Receive Date: 20220106
  Receipt Date: 20220126
  Transmission Date: 20220423
  Serious: Yes (Other)
  Sender: FDA-Public Use
  Company Number: CA-002147023-PHHY2017CA181320

PATIENT
  Age: 60 Year
  Sex: Female

DRUGS (22)
  1. XOLAIR [Suspect]
     Active Substance: OMALIZUMAB
     Indication: Chronic spontaneous urticaria
     Route: 058
     Dates: start: 20171129
  2. XOLAIR [Suspect]
     Active Substance: OMALIZUMAB
     Dosage: UNK
     Route: 058
     Dates: start: 20171228
  3. XOLAIR [Suspect]
     Active Substance: OMALIZUMAB
     Dosage: UNK
     Route: 058
     Dates: start: 20180124
  4. XOLAIR [Suspect]
     Active Substance: OMALIZUMAB
     Dosage: 300 MG, EVERY4 WEEKS
     Route: 058
     Dates: start: 20180321
  5. XOLAIR [Suspect]
     Active Substance: OMALIZUMAB
     Dosage: 300 MG, EVERY4 WEEKS
     Route: 058
     Dates: start: 20180321
  6. XOLAIR [Suspect]
     Active Substance: OMALIZUMAB
     Dosage: 300 MG, EVERY 4 WEEKS
     Route: 058
     Dates: start: 20180419
  7. XOLAIR [Suspect]
     Active Substance: OMALIZUMAB
     Dosage: 300 MG, EVERY 4 WEEKS
     Route: 058
     Dates: start: 20180615
  8. XOLAIR [Suspect]
     Active Substance: OMALIZUMAB
     Dosage: 300 MG, EVERY 4 WEEKS
     Route: 058
     Dates: start: 20180820
  9. XOLAIR [Suspect]
     Active Substance: OMALIZUMAB
     Dosage: 300 MG, EVERY 4 WEEKS
     Route: 058
     Dates: start: 20181015
  10. XOLAIR [Suspect]
     Active Substance: OMALIZUMAB
     Dosage: 300 MG, EVERY 4 WEEKS
     Route: 058
     Dates: start: 20181220
  11. XOLAIR [Suspect]
     Active Substance: OMALIZUMAB
     Dosage: 300 MG, EVERY 4 WEEKS
     Route: 058
     Dates: start: 20190207
  12. XOLAIR [Suspect]
     Active Substance: OMALIZUMAB
     Dosage: 300 MG, EVERY 4 WEEKS
     Route: 058
  13. XOLAIR [Suspect]
     Active Substance: OMALIZUMAB
     Dosage: UNK
     Route: 065
     Dates: start: 20210510
  14. XOLAIR [Suspect]
     Active Substance: OMALIZUMAB
     Dosage: 300 MG, EVERY 4 WEEKS
     Route: 058
  15. XOLAIR [Suspect]
     Active Substance: OMALIZUMAB
     Dosage: 300 MG, EVERY 4 WEEKS
     Route: 058
  16. XOLAIR [Suspect]
     Active Substance: OMALIZUMAB
     Dosage: 300 MG, EVERY 4 WEEKS
     Route: 058
  17. XOLAIR [Suspect]
     Active Substance: OMALIZUMAB
     Dosage: 300 MG, UNKNOWN(EVERY 4 WEEKS)
     Route: 058
     Dates: start: 20171129
  18. MORPHINE [Suspect]
     Active Substance: MORPHINE
     Indication: Product used for unknown indication
     Route: 065
  19. CETIRIZINE HYDROCHLORIDE [Concomitant]
     Active Substance: CETIRIZINE HYDROCHLORIDE
     Indication: Product used for unknown indication
     Dates: start: 2004
  20. ZANTAC [Concomitant]
     Active Substance: RANITIDINE HYDROCHLORIDE
     Indication: Product used for unknown indication
     Route: 065
     Dates: start: 2004
  21. ATENOLOL [Concomitant]
     Active Substance: ATENOLOL
     Indication: Migraine
     Route: 065
  22. PLAVIX [Concomitant]
     Active Substance: CLOPIDOGREL BISULFATE
     Indication: Product used for unknown indication
     Route: 065

REACTIONS (25)
  - Peripheral artery occlusion [Unknown]
  - Blood pressure systolic increased [Recovering/Resolving]
  - Influenza [Not Recovered/Not Resolved]
  - Pyrexia [Unknown]
  - Blood potassium increased [Unknown]
  - Hypertension [Unknown]
  - Insomnia [Unknown]
  - Migraine with aura [Unknown]
  - Bronchitis [Unknown]
  - Vertigo [Unknown]
  - Balance disorder [Unknown]
  - Sluggishness [Unknown]
  - Muscle spasms [Unknown]
  - Abdominal pain lower [Unknown]
  - Peripheral vascular disorder [Unknown]
  - Intermittent claudication [Unknown]
  - Peripheral swelling [Unknown]
  - Headache [Unknown]
  - Pain in extremity [Unknown]
  - Urticaria [Recovered/Resolved]
  - Pruritus [Not Recovered/Not Resolved]
  - Diarrhoea [Unknown]
  - Urinary tract infection [Unknown]
  - Drug hypersensitivity [Unknown]
  - Urticaria [Not Recovered/Not Resolved]

NARRATIVE: CASE EVENT DATE: 20171129
